FAERS Safety Report 9595826 (Version 1)
Quarter: 2013Q4

REPORT INFORMATION
  Report Type: Spontaneous
  Country: PH (occurrence: PH)
  Receive Date: 20131004
  Receipt Date: 20131004
  Transmission Date: 20140711
  Serious: Yes (Death)
  Sender: FDA-Public Use
  Company Number: PH-009507513-1310PHL002201

PATIENT
  Age: 83 Year
  Sex: Male

DRUGS (1)
  1. JANUVIA [Suspect]
     Dosage: 1 DF, QD
     Route: 048

REACTIONS (1)
  - Vascular rupture [Fatal]
